FAERS Safety Report 14458747 (Version 3)
Quarter: 2018Q1

REPORT INFORMATION
  Report Type: Spontaneous
  Country: IT (occurrence: IT)
  Receive Date: 20180130
  Receipt Date: 20180219
  Transmission Date: 20180509
  Serious: Yes (Hospitalization, Other)
  Sender: FDA-Public Use
  Company Number: IT-MYLANLABS-2018M1005186

PATIENT
  Age: 59 Year
  Sex: Female

DRUGS (9)
  1. DEXAMETHASONE. [Suspect]
     Active Substance: DEXAMETHASONE
     Indication: ACUTE LYMPHOCYTIC LEUKAEMIA
     Dosage: UNK
     Route: 037
  2. PEG-L-ASPARAGINASE [Suspect]
     Active Substance: PEGASPARGASE
     Indication: ACUTE LYMPHOCYTIC LEUKAEMIA
     Dosage: UNK
  3. CYTARABINE. [Suspect]
     Active Substance: CYTARABINE
     Indication: ACUTE LYMPHOCYTIC LEUKAEMIA
     Dosage: UNK
     Route: 037
  4. METHOTREXATE. [Suspect]
     Active Substance: METHOTREXATE
     Indication: ACUTE LYMPHOCYTIC LEUKAEMIA
     Dosage: UNK
     Route: 037
  5. POSACONAZOLE [Concomitant]
     Active Substance: POSACONAZOLE
     Indication: PROPHYLAXIS
     Dosage: UNK
     Dates: start: 201610
  6. G-CSF [Concomitant]
     Active Substance: GRANULOCYTE COLONY-STIMULATING FACTOR NOS
     Indication: PRODUCT USED FOR UNKNOWN INDICATION
     Dosage: 300 ?G, UNK
     Dates: start: 201612
  7. IDARUBICIN [Suspect]
     Active Substance: IDARUBICIN
     Indication: ACUTE LYMPHOCYTIC LEUKAEMIA
     Dosage: UNK
  8. VINCRISTINE [Suspect]
     Active Substance: VINCRISTINE
     Indication: ACUTE LYMPHOCYTIC LEUKAEMIA
     Dosage: UNK
  9. CYCLOPHOSPHAMIDE. [Suspect]
     Active Substance: CYCLOPHOSPHAMIDE
     Indication: ACUTE LYMPHOCYTIC LEUKAEMIA
     Dosage: UNK

REACTIONS (25)
  - Herpes simplex [Recovered/Resolved]
  - Septic shock [Recovered/Resolved]
  - Pyrexia [Recovered/Resolved]
  - Cranial nerve infection [Recovering/Resolving]
  - Hypotension [Recovered/Resolved]
  - Hyperaemia [Recovered/Resolved]
  - Iridocyclitis [Recovered/Resolved]
  - Endophthalmitis [Recovered/Resolved]
  - Enterococcal bacteraemia [Recovered/Resolved]
  - Fusarium infection [Recovered/Resolved]
  - Neutropenia [Recovered/Resolved]
  - Cholecystitis acute [Recovered/Resolved]
  - Skin necrosis [Recovered/Resolved]
  - Chorioretinal disorder [Recovered/Resolved]
  - Vitreous floaters [Recovered/Resolved]
  - Eyelid oedema [Recovered/Resolved]
  - Mucosal infection [Unknown]
  - Conjunctival oedema [Recovered/Resolved]
  - Eye pain [Recovered/Resolved]
  - Vitritis [Recovered/Resolved]
  - C-reactive protein increased [Recovered/Resolved]
  - Skin lesion [Recovered/Resolved]
  - Iris adhesions [Recovered/Resolved]
  - Eye abscess [Recovering/Resolving]
  - Visual acuity reduced [Recovered/Resolved]

NARRATIVE: CASE EVENT DATE: 2016
